FAERS Safety Report 18908270 (Version 2)
Quarter: 2021Q1

REPORT INFORMATION
  Report Type: Spontaneous
  Country: IT (occurrence: IT)
  Receive Date: 20210218
  Receipt Date: 20210219
  Transmission Date: 20210420
  Serious: Yes (Death, Hospitalization)
  Sender: FDA-Public Use
  Company Number: IT-TEVA-2021-IT-1879330

PATIENT
  Age: 41 Year
  Sex: Male

DRUGS (8)
  1. CEFEPIME [Suspect]
     Active Substance: CEFEPIME HYDROCHLORIDE
     Indication: COVID-19 PNEUMONIA
     Route: 065
     Dates: start: 202003
  2. TOCILIZUMAB. [Suspect]
     Active Substance: TOCILIZUMAB
     Indication: COVID-19 PNEUMONIA
     Dosage: ADMINISTERED ON DAY 7 AND ON DAY 8
     Route: 065
     Dates: start: 2020
  3. AZITHROMYCIN ANHYDROUS. [Suspect]
     Active Substance: AZITHROMYCIN ANHYDROUS
     Indication: COVID-19 PNEUMONIA
     Route: 065
     Dates: start: 2020
  4. HYDROXYCHLOROQUINE [Suspect]
     Active Substance: HYDROXYCHLOROQUINE
     Indication: COVID-19 PNEUMONIA
     Route: 065
     Dates: start: 202003
  5. PREDNISONE. [Suspect]
     Active Substance: PREDNISONE
     Indication: IMMUNOSUPPRESSANT DRUG THERAPY
     Route: 065
  6. TACROLIMUS. [Suspect]
     Active Substance: TACROLIMUS
     Indication: IMMUNOSUPPRESSANT DRUG THERAPY
     Route: 065
     Dates: end: 202003
  7. DARUNAVIR/RITONAVIR [Suspect]
     Active Substance: DARUNAVIR\RITONAVIR
     Indication: COVID-19 PNEUMONIA
     Route: 065
     Dates: start: 202003
  8. METHYLPREDNISOLONE. [Suspect]
     Active Substance: METHYLPREDNISOLONE
     Indication: IMMUNOSUPPRESSANT DRUG THERAPY
     Dosage: 20 MILLIGRAM DAILY;
     Route: 065
     Dates: start: 202003

REACTIONS (6)
  - COVID-19 pneumonia [Fatal]
  - Respiratory failure [Fatal]
  - Sepsis [Fatal]
  - Fluid overload [Unknown]
  - Renal impairment [Unknown]
  - Off label use [Unknown]

NARRATIVE: CASE EVENT DATE: 2020
